FAERS Safety Report 16066016 (Version 1)
Quarter: 2019Q1

REPORT INFORMATION
  Report Type: Spontaneous
  Country: AU (occurrence: AU)
  Receive Date: 20190313
  Receipt Date: 20190313
  Transmission Date: 20190418
  Serious: Yes (Other)
  Sender: FDA-Public Use
  Company Number: AU-AMGEN-AUSSP2019035293

PATIENT
  Age: 75 Year
  Sex: Female

DRUGS (11)
  1. PANADOL [Concomitant]
     Active Substance: ACETAMINOPHEN
  2. NEXIUM [Concomitant]
     Active Substance: ESOMEPRAZOLE MAGNESIUM
  3. MELOXICAM. [Concomitant]
     Active Substance: MELOXICAM
  4. ENDEP [Suspect]
     Active Substance: AMITRIPTYLINE HYDROCHLORIDE
     Indication: PRODUCT USED FOR UNKNOWN INDICATION
     Dosage: UNK
     Route: 065
  5. ATACAND [Concomitant]
     Active Substance: CANDESARTAN CILEXETIL
  6. LYRICA [Concomitant]
     Active Substance: PREGABALIN
  7. OSTELIN [Concomitant]
  8. ZIMSTAT [Concomitant]
     Active Substance: SIMVASTATIN
  9. OVESTIN [Concomitant]
     Active Substance: ESTRIOL
  10. ASPIRIN. [Concomitant]
     Active Substance: ASPIRIN
  11. PROLIA [Suspect]
     Active Substance: DENOSUMAB
     Indication: PRODUCT USED FOR UNKNOWN INDICATION
     Dosage: UNK
     Route: 065

REACTIONS (1)
  - Atypical fracture [Recovering/Resolving]

NARRATIVE: CASE EVENT DATE: 20181009
